FAERS Safety Report 18095824 (Version 1)
Quarter: 2020Q3

REPORT INFORMATION
  Report Type: Spontaneous
  Country: IT (occurrence: IT)
  Receive Date: 20200730
  Receipt Date: 20200730
  Transmission Date: 20201103
  Serious: Yes (Other)
  Sender: FDA-Public Use
  Company Number: IT-SAMSUNG BIOEPIS-SB-2020-23554

PATIENT
  Age: 58 Year
  Sex: Female
  Weight: 70 kg

DRUGS (1)
  1. IMRALDI [Suspect]
     Active Substance: ADALIMUMAB
     Indication: PSORIATIC ARTHROPATHY
     Route: 058
     Dates: start: 20190430, end: 20190731

REACTIONS (2)
  - Drug ineffective [Unknown]
  - Psoriatic arthropathy [Unknown]
